FAERS Safety Report 25165926 (Version 2)
Quarter: 2025Q2

REPORT INFORMATION
  Report Type: Spontaneous
  Country: GB (occurrence: GB)
  Receive Date: 20250407
  Receipt Date: 20250430
  Transmission Date: 20250717
  Serious: Yes (Other)
  Sender: JOHNSON AND JOHNSON
  Company Number: GB-MHRA-35220311

PATIENT
  Age: 31 Year
  Sex: Female
  Weight: 60 kg

DRUGS (3)
  1. PALIPERIDONE PALMITATE [Suspect]
     Active Substance: PALIPERIDONE PALMITATE
     Indication: Product used for unknown indication
     Dosage: THEN 75MG SCHEDULED FOR ONCE A MONTH IN COMMUNITY
     Route: 030
     Dates: start: 202504
  2. PALIPERIDONE PALMITATE [Suspect]
     Active Substance: PALIPERIDONE PALMITATE
     Route: 030
     Dates: start: 20250331, end: 20250331
  3. PALIPERIDONE PALMITATE [Suspect]
     Active Substance: PALIPERIDONE PALMITATE
     Route: 030
     Dates: start: 20250324, end: 20250324

REACTIONS (17)
  - Hyporesponsive to stimuli [Unknown]
  - Polydipsia [Unknown]
  - Alveolitis [Unknown]
  - Confusional state [Unknown]
  - Myalgia [Unknown]
  - Dyskinesia [Unknown]
  - Depressed level of consciousness [Unknown]
  - Arrhythmia [Unknown]
  - Disorientation [Unknown]
  - Somnolence [Unknown]
  - Nausea [Unknown]
  - Appetite disorder [Unknown]
  - Hyperphagia [Unknown]
  - Excessive eye blinking [Unknown]
  - Feeling cold [Unknown]
  - Insomnia [Unknown]
  - Tremor [Unknown]

NARRATIVE: CASE EVENT DATE: 20250331
